FAERS Safety Report 6863262-7 (Version None)
Quarter: 2010Q3

REPORT INFORMATION
  Report Type: 
  Country: None (occurrence: None)
  Receive Date: 20100721
  Receipt Date: 20100715
  Transmission Date: 20110219
  Serious: Yes (Hospitalization)
  Sender: FDA-Public Use
  Company Number: US-B.I. PHARMACEUTICALS,INC./RIDGEFIELD-2010-BP-08101BP

PATIENT
  Age: 86 Year
  Sex: Female

DRUGS (3)
  1. ATROVENT HFA [Suspect]
     Indication: ASTHMA
     Dosage: 4 PUF
     Route: 055
     Dates: start: 20000101
  2. PREMARIN [Concomitant]
     Indication: HORMONE THERAPY
  3. SYNTHROID [Concomitant]
     Indication: HYPOTHYROIDISM

REACTIONS (5)
  - ATRIAL FIBRILLATION [None]
  - BALANCE DISORDER [None]
  - FLUSHING [None]
  - HEART RATE INCREASED [None]
  - NOREPINEPHRINE INCREASED [None]
